FAERS Safety Report 24168911 (Version 1)
Quarter: 2024Q3

REPORT INFORMATION
  Report Type: Spontaneous
  Country: US (occurrence: None)
  Receive Date: 20240802
  Receipt Date: 20240802
  Transmission Date: 20241017
  Serious: Yes (Hospitalization)
  Sender: Public
  Company Number: None

PATIENT
  Sex: Female

DRUGS (1)
  1. SKYRIZI [Suspect]
     Active Substance: RISANKIZUMAB-RZAA
     Dosage: OTHER FREQUENCY : EVERY8WEEKS ;?
     Route: 042
     Dates: start: 202311

REACTIONS (3)
  - Dehydration [None]
  - Abdominal pain [None]
  - Diarrhoea [None]
